FAERS Safety Report 21273715 (Version 1)
Quarter: 2022Q3

REPORT INFORMATION
  Report Type: Spontaneous
  Country: US (occurrence: None)
  Receive Date: 20220830
  Receipt Date: 20220830
  Transmission Date: 20221026
  Serious: Yes (Life-Threatening, Hospitalization, Disabling, Other)
  Sender: FDA-Public Use
  Company Number: None

PATIENT
  Sex: Female
  Weight: 63 kg

DRUGS (3)
  1. BENADRYL [Suspect]
     Active Substance: DIPHENHYDRAMINE HYDROCHLORIDE
  2. VITAMIN B-COMPLEX [Concomitant]
     Active Substance: DEXPANTHENOL\NIACINAMIDE\PYRIDOXINE HYDROCHLORIDE\RIBOFLAVIN 5^-PHOSPHATE SODIUM\THIAMINE HYDROCHLOR
  3. Multi-Vitamin [Concomitant]

REACTIONS (15)
  - Product complaint [None]
  - Musculoskeletal stiffness [None]
  - Monoplegia [None]
  - Joint injury [None]
  - Pain in extremity [None]
  - Restless legs syndrome [None]
  - Joint injury [None]
  - Tension headache [None]
  - Muscle injury [None]
  - Dyslexia [None]
  - Reading disorder [None]
  - Eye movement disorder [None]
  - Eye disorder [None]
  - Blindness [None]
  - Tendon injury [None]
